FAERS Safety Report 24648392 (Version 1)
Quarter: 2024Q4

REPORT INFORMATION
  Report Type: Spontaneous
  Country: SE (occurrence: SE)
  Receive Date: 20241121
  Receipt Date: 20241121
  Transmission Date: 20250115
  Serious: Yes (Death, Hospitalization, Other)
  Sender: MYLAN
  Company Number: SE-BRISTOL-MYERS SQUIBB COMPANY-2024-152852

PATIENT
  Age: 77 Year
  Sex: Male

DRUGS (5)
  1. APIXABAN [Suspect]
     Active Substance: APIXABAN
     Indication: Atrial fibrillation
     Dosage: DOSE : UNAVAILABLE;  FREQ : UNAVAILABLE
     Route: 065
  2. APIXABAN [Suspect]
     Active Substance: APIXABAN
     Indication: Pulmonary embolism
  3. LENVATINIB [Suspect]
     Active Substance: LENVATINIB
     Indication: Product used for unknown indication
     Dosage: UNK
     Route: 065
  4. ZOLEDRONIC ACID [Suspect]
     Active Substance: ZOLEDRONIC ACID
     Indication: Product used for unknown indication
     Dosage: UNK
     Route: 065
  5. SODIUM IODIDE I-131 [Suspect]
     Active Substance: SODIUM IODIDE I-131
     Indication: Metastases to spine
     Dosage: 8 GY
     Route: 065

REACTIONS (10)
  - Disease progression [Fatal]
  - Hepatic haemorrhage [Unknown]
  - Haematuria [Unknown]
  - Pulmonary embolism [Unknown]
  - Palliative care [Unknown]
  - Urge incontinence [Unknown]
  - Back pain [Unknown]
  - Condition aggravated [Unknown]
  - Fatigue [Unknown]
  - Drug ineffective [Unknown]
